FAERS Safety Report 9677429 (Version 2)
Quarter: 2013Q4

REPORT INFORMATION
  Report Type: Spontaneous
  Country: US (occurrence: US)
  Receive Date: 20131108
  Receipt Date: 20131108
  Transmission Date: 20140711
  Serious: Yes (Other)
  Sender: FDA-Public Use
  Company Number: US-CELGENEUS-163-21880-13100334

PATIENT
  Age: 45 Year
  Sex: Male

DRUGS (29)
  1. REVLIMID [Suspect]
     Indication: PLASMA CELL MYELOMA
     Dosage: 25 MILLIGRAM
     Route: 048
     Dates: start: 200802
  2. REVLIMID [Suspect]
     Dosage: 25 MILLIGRAM
     Route: 048
     Dates: start: 201201, end: 201305
  3. REVLIMID [Suspect]
     Dosage: 10 MILLIGRAM
     Route: 048
     Dates: start: 201306
  4. REVLIMID [Suspect]
     Dosage: 25 MILLIGRAM
     Route: 048
     Dates: start: 201307, end: 2013
  5. VELCADE [Concomitant]
     Indication: PRODUCT USED FOR UNKNOWN INDICATION
     Route: 065
     Dates: start: 200807, end: 200809
  6. VELCADE [Concomitant]
     Route: 065
     Dates: start: 20110126
  7. VELCADE [Concomitant]
     Dosage: 1.5 MILLIGRAM/SQ. METER
     Route: 041
     Dates: start: 201206, end: 201305
  8. VELCADE [Concomitant]
     Route: 065
     Dates: start: 201306
  9. DEXAMETHASONE [Concomitant]
     Indication: PRODUCT USED FOR UNKNOWN INDICATION
     Dosage: 40 MILLIGRAM
     Route: 065
  10. DEXAMETHASONE [Concomitant]
     Route: 065
     Dates: start: 200807, end: 200809
  11. DEXAMETHASONE [Concomitant]
     Route: 065
     Dates: start: 20110126
  12. DEXAMETHASONE [Concomitant]
     Route: 065
     Dates: start: 201201, end: 201305
  13. DEXAMETHASONE [Concomitant]
     Route: 065
     Dates: start: 201306
  14. OMEPRAZOLE [Concomitant]
     Indication: PRODUCT USED FOR UNKNOWN INDICATION
     Dosage: 10 MILLIGRAM
     Route: 048
  15. HYDROCODONE/ACETAMINOPHEN [Concomitant]
     Indication: PRODUCT USED FOR UNKNOWN INDICATION
     Dosage: 10MG/325MG
     Route: 048
  16. SULFAMETHOXAZOLE W/TRIMETHOPRIM [Concomitant]
     Indication: PRODUCT USED FOR UNKNOWN INDICATION
     Dosage: 800MG/160MG
     Route: 048
  17. LORAZEPAM [Concomitant]
     Indication: ANXIETY
     Dosage: 3 MILLIGRAM
     Route: 048
  18. LORAZEPAM [Concomitant]
     Indication: RESTLESSNESS
  19. LORAZEPAM [Concomitant]
     Indication: NAUSEA
  20. DOXYCYCLINE [Concomitant]
     Indication: PRODUCT USED FOR UNKNOWN INDICATION
     Dosage: 200 MILLIGRAM
     Route: 065
  21. ACYCLOVIR [Concomitant]
     Indication: PRODUCT USED FOR UNKNOWN INDICATION
     Dosage: 400 MILLIGRAM
     Route: 048
  22. PROCHLORPERAZINE [Concomitant]
     Indication: NAUSEA
     Dosage: 40 MILLIGRAM
     Route: 048
  23. PROCHLORPERAZINE [Concomitant]
     Indication: VOMITING
  24. SENOKOT S [Concomitant]
     Indication: PRODUCT USED FOR UNKNOWN INDICATION
     Dosage: 8.6-520MG
     Route: 048
  25. DRONABINOL [Concomitant]
     Indication: NAUSEA
     Dosage: 5 MILLIGRAM
     Route: 048
  26. DRONABINOL [Concomitant]
     Indication: VOMITING
  27. DRONABINOL [Concomitant]
     Indication: DECREASED APPETITE
  28. ASPIRIN [Concomitant]
     Indication: PRODUCT USED FOR UNKNOWN INDICATION
     Dosage: 81 MILLIGRAM
     Route: 048
  29. ONDASETRON [Concomitant]
     Indication: PRODUCT USED FOR UNKNOWN INDICATION
     Dosage: 16 MILLIGRAM
     Route: 048

REACTIONS (4)
  - Osteonecrosis of jaw [Unknown]
  - Thrombocytopenia [Unknown]
  - Neutropenia [Unknown]
  - Plasma cell myeloma [Unknown]
